FAERS Safety Report 4401174-9 (Version None)
Quarter: 2004Q3

REPORT INFORMATION
  Report Type: 
  Country: None (occurrence: None)
  Receive Date: 20040907
  Receipt Date: 20031203
  Transmission Date: 20050211
  Serious: No
  Sender: FDA-Public Use
  Company Number: US-BRISTOL-MYERS SQUIBB COMPANY-12448387

PATIENT
  Age: 88 Year
  Sex: Male

DRUGS (3)
  1. COUMADIN [Suspect]
     Route: 048
  2. VITAMIN E [Concomitant]
  3. OCUVITE [Concomitant]
     Route: 048
     Dates: start: 20031126, end: 20031202

REACTIONS (1)
  - HAEMORRHAGE [None]
